FAERS Safety Report 6558537-5 (Version None)
Quarter: 2010Q1

REPORT INFORMATION
  Report Type: 
  Country: None (occurrence: None)
  Receive Date: 20100129
  Receipt Date: 20100121
  Transmission Date: 20100710
  Serious: Yes (Hospitalization)
  Sender: FDA-Public Use
  Company Number: US-JNJFOC-20100110434

PATIENT
  Sex: Female

DRUGS (4)
  1. DURAGESIC-100 [Suspect]
     Indication: ARTHRITIS
     Route: 062
     Dates: start: 20070101, end: 20100118
  2. DURAGESIC-100 [Suspect]
     Indication: FIBROMYALGIA
     Route: 062
     Dates: start: 20070101, end: 20100118
  3. DURAGESIC-100 [Suspect]
     Route: 062
     Dates: start: 20100119
  4. DURAGESIC-100 [Suspect]
     Route: 062
     Dates: start: 20100119

REACTIONS (1)
  - ARTHRITIS [None]
